FAERS Safety Report 7105636-5 (Version None)
Quarter: 2010Q4

REPORT INFORMATION
  Report Type: 
  Country: None (occurrence: None)
  Receive Date: 20101116
  Receipt Date: 20101109
  Transmission Date: 20110411
  Serious: Yes (Other)
  Sender: FDA-Public Use
  Company Number: US-ALEXION-A201001290

PATIENT
  Sex: Female

DRUGS (10)
  1. SOLIRIS [Suspect]
     Indication: PAROXYSMAL NOCTURNAL HAEMOGLOBINURIA
     Dosage: UNK
     Route: 042
  2. SOLIRIS [Suspect]
     Dosage: 900 MG, Q12D
     Route: 042
     Dates: start: 20070511
  3. SOLIRIS [Suspect]
     Dosage: 900 MG, QW
     Route: 042
     Dates: start: 20080812, end: 20080910
  4. SOLIRIS [Suspect]
     Dosage: 1200 MG, Q2W
     Route: 042
     Dates: start: 20080924
  5. PREDNISONE [Concomitant]
     Dosage: 80 MG, QD
     Route: 048
  6. COUMADIN [Concomitant]
     Dosage: UNK
     Route: 048
  7. FOLIC ACID [Concomitant]
     Dosage: UNK
     Route: 048
  8. EFFEXOR [Concomitant]
     Dosage: UNK
     Route: 048
  9. VITAMIN B12                        /00056201/ [Concomitant]
     Dosage: UNK
     Route: 048
  10. NEXIUM [Concomitant]
     Indication: ABDOMINAL DISCOMFORT
     Dosage: UNK
     Route: 048

REACTIONS (7)
  - COPPER DEFICIENCY [None]
  - FEELING HOT [None]
  - FOOD POISONING [None]
  - GASTRITIS EROSIVE [None]
  - GASTROINTESTINAL ULCER [None]
  - HIATUS HERNIA [None]
  - PANCYTOPENIA [None]
